FAERS Safety Report 17076032 (Version 2)
Quarter: 2019Q4

REPORT INFORMATION
  Report Type: Spontaneous
  Country: BE (occurrence: BE)
  Receive Date: 20191126
  Receipt Date: 20191212
  Transmission Date: 20200122
  Serious: Yes (Other)
  Sender: FDA-Public Use
  Company Number: BE-PFIZER INC-2019504974

PATIENT
  Age: 24 Week
  Sex: Male

DRUGS (10)
  1. VANCOMYCIN HCL [Suspect]
     Active Substance: VANCOMYCIN HYDROCHLORIDE
     Indication: SEPSIS
     Dosage: UNK
  2. DIFLUCAN [Suspect]
     Active Substance: FLUCONAZOLE
     Indication: SEPSIS
     Dosage: UNK
  3. METRONIDAZOLE. [Suspect]
     Active Substance: METRONIDAZOLE
     Indication: INTESTINAL PERFORATION
     Dosage: UNK
  4. METRONIDAZOLE. [Suspect]
     Active Substance: METRONIDAZOLE
     Indication: SEPSIS
  5. CEFOTAXIME SODIUM [Suspect]
     Active Substance: CEFOTAXIME SODIUM
     Indication: SEPSIS
     Dosage: UNK
  6. CEFOTAXIME SODIUM [Suspect]
     Active Substance: CEFOTAXIME SODIUM
     Indication: INTESTINAL PERFORATION
  7. VANCOMYCIN HCL [Suspect]
     Active Substance: VANCOMYCIN HYDROCHLORIDE
     Indication: INTESTINAL PERFORATION
  8. AMIKACIN. [Suspect]
     Active Substance: AMIKACIN
     Indication: SEPSIS
  9. DIFLUCAN [Suspect]
     Active Substance: FLUCONAZOLE
     Indication: INTESTINAL PERFORATION
  10. AMIKACIN. [Suspect]
     Active Substance: AMIKACIN
     Indication: INTESTINAL PERFORATION
     Dosage: UNK

REACTIONS (4)
  - Escherichia infection [Unknown]
  - Coma [Unknown]
  - Drug resistance [Unknown]
  - Brain abscess [Unknown]
